FAERS Safety Report 8604184-0 (Version None)
Quarter: 2012Q3

REPORT INFORMATION
  Report Type: 
  Country: None (occurrence: None)
  Receive Date: 20120820
  Receipt Date: 20120814
  Transmission Date: 20120928
  Serious: No
  Sender: FDA-Public Use
  Company Number: US-PFIZER INC-2012199445

PATIENT

DRUGS (2)
  1. FENTANYL [Suspect]
  2. LYRICA [Suspect]

REACTIONS (1)
  - ANXIETY [None]
